FAERS Safety Report 18589934 (Version 1)
Quarter: 2020Q4

REPORT INFORMATION
  Report Type: Spontaneous
  Country: US (occurrence: US)
  Receive Date: 20201207
  Receipt Date: 20201207
  Transmission Date: 20210114
  Serious: No
  Sender: FDA-Public Use
  Company Number: None

PATIENT
  Age: 73 Year
  Sex: Female
  Weight: 70.47 kg

DRUGS (9)
  1. IBRANCE [Suspect]
     Active Substance: PALBOCICLIB
     Indication: BREAST CANCER
     Route: 048
     Dates: start: 20200512, end: 20201207
  2. ZINC. [Concomitant]
     Active Substance: ZINC
  3. DICLOFENAC SODIUM. [Concomitant]
     Active Substance: DICLOFENAC SODIUM
  4. CALCIUM + D3 [Concomitant]
     Active Substance: CALCIUM\CHOLECALCIFEROL
  5. CLONIDINE HCL [Concomitant]
     Active Substance: CLONIDINE HYDROCHLORIDE
  6. FASLODEX [Concomitant]
     Active Substance: FULVESTRANT
  7. VITAMIN C IMMUNE HEALTH [Concomitant]
  8. XGEVA [Concomitant]
     Active Substance: DENOSUMAB
  9. ZINC. [Concomitant]
     Active Substance: ZINC

REACTIONS (1)
  - Disease progression [None]

NARRATIVE: CASE EVENT DATE: 20201207
